FAERS Safety Report 19307757 (Version 2)
Quarter: 2021Q2

REPORT INFORMATION
  Report Type: Spontaneous
  Country: JP (occurrence: JP)
  Receive Date: 20210526
  Receipt Date: 20210526
  Transmission Date: 20210717
  Serious: Yes (Other)
  Sender: FDA-Public Use
  Company Number: JP-PFIZER INC-2021540406

PATIENT
  Age: 77 Year
  Sex: Male

DRUGS (5)
  1. PACLITAXEL. [Suspect]
     Active Substance: PACLITAXEL
     Dosage: 80 MG/M2, CYCLIC
  2. OXALIPLATIN. [Suspect]
     Active Substance: OXALIPLATIN
     Indication: SMALL INTESTINE CARCINOMA
     Dosage: {CYCLICAL} (CYCLICAL)
  3. PACLITAXEL. [Suspect]
     Active Substance: PACLITAXEL
     Dosage: 66 MG/M2
  4. IRINOTECAN HCL [Suspect]
     Active Substance: IRINOTECAN HYDROCHLORIDE
     Indication: SMALL INTESTINE CARCINOMA
     Dosage: 150 MG/M2, CYCLIC
  5. GIMERACIL;OTERACIL POTASSIUM;TEGAFUR (S?1) [Concomitant]
     Indication: SMALL INTESTINE CARCINOMA
     Dosage: {CYCLICAL} (CYCLICAL)

REACTIONS (1)
  - Neuropathy peripheral [Unknown]
